FAERS Safety Report 8787184 (Version 1)
Quarter: 2012Q4

REPORT INFORMATION
  Report Type: 
  Country: FR (occurrence: FR)
  Receive Date: 20120914
  Receipt Date: 20120914
  Transmission Date: 20130627
  Serious: Yes (Hospitalization, Other)
  Sender: FDA-Public Use
  Company Number: FR-ELI_LILLY_AND_COMPANY-FR201209001333

PATIENT
  Age: 29 Year
  Sex: Female

DRUGS (1)
  1. OLANZAPINE [Suspect]
     Indication: MANIA
     Dosage: 10 mg, qd

REACTIONS (2)
  - Hepatotoxicity [Recovered/Resolved]
  - Mania [Unknown]
